FAERS Safety Report 19792651 (Version 2)
Quarter: 2021Q3

REPORT INFORMATION
  Report Type: Spontaneous
  Country: ES (occurrence: ES)
  Receive Date: 20210906
  Receipt Date: 20210914
  Transmission Date: 20211014
  Serious: Yes (Other)
  Sender: FDA-Public Use
  Company Number: ES-MYLANLABS-2021M1058255

PATIENT
  Age: 54 Year
  Sex: Male

DRUGS (5)
  1. ERITROMICINA                       /00020901/ [Suspect]
     Active Substance: ERYTHROMYCIN
     Indication: RESPIRATORY TRACT INFECTION
     Dosage: 1 GRAM, QD
     Route: 042
     Dates: start: 20201106, end: 20201109
  2. LINEZOLID. [Suspect]
     Active Substance: LINEZOLID
     Indication: RESPIRATORY TRACT INFECTION
     Dosage: 1.2 GRAM
     Route: 042
     Dates: start: 20201106, end: 20201110
  3. FLUCONAZOL [Suspect]
     Active Substance: FLUCONAZOLE
     Indication: RESPIRATORY TRACT INFECTION
     Dosage: 200 MILLIGRAM, QD
     Route: 042
     Dates: start: 20201106, end: 20201109
  4. MEROPENEM. [Concomitant]
     Active Substance: MEROPENEM
     Indication: RESPIRATORY TRACT INFECTION
     Dosage: 3 GRAM, QD
     Route: 042
     Dates: start: 20201103, end: 20201113
  5. TEICOPLANINA [Concomitant]
     Active Substance: TEICOPLANIN
     Indication: RESPIRATORY TRACT INFECTION
     Dosage: 400 MILLIGRAM
     Route: 042
     Dates: start: 20201103, end: 20201106

REACTIONS (1)
  - Hepatic cytolysis [Recovered/Resolved]

NARRATIVE: CASE EVENT DATE: 20201109
